FAERS Safety Report 7183762-2 (Version None)
Quarter: 2010Q4

REPORT INFORMATION
  Report Type: 
  Country: None (occurrence: None)
  Receive Date: 20101222
  Receipt Date: 20101215
  Transmission Date: 20110411
  Serious: Yes (Death, Hospitalization, Other)
  Sender: FDA-Public Use
  Company Number: MX-SANOFI-AVENTIS-2010SA076013

PATIENT
  Age: 58 Year
  Sex: Female

DRUGS (2)
  1. LANTUS [Suspect]
     Indication: TYPE 2 DIABETES MELLITUS
     Dosage: 30IU DAY (20IU IN THE MORNING AND 10IU AT NIGHT)
     Route: 058
     Dates: start: 20050101, end: 20100101
  2. ALL OTHER THERAPEUTIC PRODUCTS [Concomitant]
     Route: 048
     Dates: end: 20100101

REACTIONS (6)
  - AMNESIA [None]
  - BRAIN NEOPLASM [None]
  - HEADACHE [None]
  - HYPERGLYCAEMIA [None]
  - MEDICATION ERROR [None]
  - VERTIGO [None]
